FAERS Safety Report 5147380-X (Version None)
Quarter: 2006Q4

REPORT INFORMATION
  Report Type: 
  Country: None (occurrence: None)
  Receive Date: 20061106
  Receipt Date: 20061024
  Transmission Date: 20070319
  Serious: Yes (Other)
  Sender: FDA-Public Use
  Company Number: 2006130041

PATIENT
  Sex: Female

DRUGS (1)
  1. VISINE PURE TEARS (GLYCERIN, POLYETHYLENE GLYCOL, HYDROXYPROPYLETHYLCE [Suspect]
     Indication: VISUAL DISTURBANCE
     Dosage: 1-2 DROPS AS NEEDED  VARIES, OPHTHALMIC
     Route: 047

REACTIONS (3)
  - CONDITION AGGRAVATED [None]
  - VISION BLURRED [None]
  - VISUAL ACUITY REDUCED [None]
